FAERS Safety Report 10099101 (Version 2)
Quarter: 2015Q3

REPORT INFORMATION
  Report Type: Spontaneous
  Country: US (occurrence: US)
  Receive Date: 20140423
  Receipt Date: 20150813
  Transmission Date: 20151125
  Serious: Yes (Other)
  Sender: FDA-Public Use
  Company Number: US-GILEAD-2013-0067232

PATIENT
  Age: 75 Year
  Sex: Female

DRUGS (1)
  1. LETAIRIS [Suspect]
     Active Substance: AMBRISENTAN
     Route: 048
     Dates: start: 20121203

REACTIONS (4)
  - Swelling face [Unknown]
  - Dyspnoea [Unknown]
  - Nausea [Unknown]
  - Pharyngeal oedema [Unknown]
